FAERS Safety Report 7564226-0 (Version None)
Quarter: 2011Q2

REPORT INFORMATION
  Report Type: 
  Country: None (occurrence: None)
  Receive Date: 20110622
  Receipt Date: 20110608
  Transmission Date: 20111010
  Serious: Yes (Other)
  Sender: FDA-Public Use
  Company Number: PHHY2011US50923

PATIENT
  Sex: Female
  Weight: 68.481 kg

DRUGS (2)
  1. SYNTHROID [Suspect]
     Indication: HYPOTHYROIDISM
     Dosage: 0.1 MG, UNK
     Dates: start: 19910101
  2. DIOVAN [Suspect]

REACTIONS (5)
  - DRUG HYPERSENSITIVITY [None]
  - THROAT TIGHTNESS [None]
  - GENITAL SWELLING [None]
  - HEART RATE DECREASED [None]
  - BLOOD PRESSURE FLUCTUATION [None]
